FAERS Safety Report 15499122 (Version 1)
Quarter: 2018Q4

REPORT INFORMATION
  Report Type: Spontaneous
  Country: CN (occurrence: CN)
  Receive Date: 20181015
  Receipt Date: 20181015
  Transmission Date: 20190205
  Serious: Yes (Hospitalization)
  Sender: FDA-Public Use
  Company Number: CN-PFIZER INC-2018414332

PATIENT
  Age: 3 Week
  Sex: Female

DRUGS (3)
  1. MEROPENEM. [Suspect]
     Active Substance: MEROPENEM
     Indication: MENINGITIS NEONATAL
  2. MEROPENEM. [Suspect]
     Active Substance: MEROPENEM
     Indication: NEONATAL PNEUMONIA
  3. MEROPENEM. [Suspect]
     Active Substance: MEROPENEM
     Indication: INFECTION
     Dosage: 0.04 G, 3X/DAY
     Route: 041
     Dates: start: 20180711, end: 20180722

REACTIONS (3)
  - Fungal infection [Unknown]
  - Superinfection fungal [Unknown]
  - Product use issue [Unknown]

NARRATIVE: CASE EVENT DATE: 20180722
